FAERS Safety Report 22087003 (Version 1)
Quarter: 2023Q1

REPORT INFORMATION
  Report Type: Spontaneous
  Country: US (occurrence: None)
  Receive Date: 20230313
  Receipt Date: 20230313
  Transmission Date: 20230418
  Serious: No
  Sender: FDA-Public Use
  Company Number: 2023A046996

PATIENT
  Age: 25340 Day
  Sex: Female
  Weight: 104.3 kg

DRUGS (1)
  1. BYDUREON BCISE [Suspect]
     Active Substance: EXENATIDE
     Indication: Diabetes mellitus
     Route: 058
     Dates: start: 20220626

REACTIONS (7)
  - Device use issue [Recovered/Resolved]
  - Injection site haemorrhage [Unknown]
  - Injection site mass [Unknown]
  - Injection site bruising [Unknown]
  - Incorrect dose administered by device [Unknown]
  - Confusional state [Unknown]
  - Device leakage [Unknown]

NARRATIVE: CASE EVENT DATE: 20230220
